FAERS Safety Report 22541940 (Version 1)
Quarter: 2023Q2

REPORT INFORMATION
  Report Type: Spontaneous
  Country: US (occurrence: US)
  Receive Date: 20230609
  Receipt Date: 20230609
  Transmission Date: 20230721
  Serious: Yes (Death, Hospitalization, Other)
  Sender: FDA-Public Use
  Company Number: US-AMGEN-USASP2023094729

PATIENT

DRUGS (1)
  1. IVABRADINE [Suspect]
     Active Substance: IVABRADINE
     Indication: Cardiac failure
     Dosage: UNK
     Route: 065

REACTIONS (4)
  - Death [Fatal]
  - Adverse event [Fatal]
  - Cardiovascular disorder [Fatal]
  - Cardiac failure [Unknown]
